FAERS Safety Report 22382632 (Version 1)
Quarter: 2023Q2

REPORT INFORMATION
  Report Type: Spontaneous
  Country: FR (occurrence: FR)
  Receive Date: 20230530
  Receipt Date: 20230530
  Transmission Date: 20230721
  Serious: Yes (Life-Threatening, Hospitalization, Other)
  Sender: FDA-Public Use
  Company Number: None

PATIENT
  Age: 64 Year
  Sex: Male

DRUGS (17)
  1. TOUJEO [Suspect]
     Active Substance: INSULIN GLARGINE
     Indication: Type 2 diabetes mellitus
     Dosage: 50 IU, QD (INSTEAD OF 30 UNITS/D)
     Route: 058
     Dates: end: 20230318
  2. METFORMIN HYDROCHLORIDE [Suspect]
     Active Substance: METFORMIN HYDROCHLORIDE
     Indication: Type 2 diabetes mellitus
     Dosage: 1000 MG, QD ( INSTEAD OF 700MG/D)
     Route: 048
     Dates: end: 20230318
  3. ALPRAZOLAM [Suspect]
     Active Substance: ALPRAZOLAM
     Dosage: UNK
     Dates: end: 20230319
  4. AMITRIPTYLINE HYDROCHLORIDE [Suspect]
     Active Substance: AMITRIPTYLINE HYDROCHLORIDE
     Dosage: UNK
     Dates: end: 20230319
  5. CANRENOATE POTASSIUM\TROMETHAMINE [Concomitant]
     Active Substance: CANRENOATE POTASSIUM\TROMETHAMINE
     Dosage: UNK
  6. HUMALOG [Concomitant]
     Active Substance: INSULIN LISPRO
     Dosage: UNK
  7. EUPANTOL [Concomitant]
     Active Substance: PANTOPRAZOLE SODIUM
     Dosage: UNK
  8. ACETYLLEUCINE, L- [Concomitant]
     Active Substance: ACETYLLEUCINE, L-
     Dosage: UNK
  9. RIFAXIMIN [Concomitant]
     Active Substance: RIFAXIMIN
     Dosage: UNK
  10. DUPHALAC [Concomitant]
     Active Substance: LACTULOSE
     Dosage: UNK
  11. TRIMEBUTINE MALEATE [Concomitant]
     Active Substance: TRIMEBUTINE MALEATE
     Dosage: UNK
  12. VOGALENE [Concomitant]
     Active Substance: METOPIMAZINE
     Dosage: UNK
  13. TRULICITY [Concomitant]
     Active Substance: DULAGLUTIDE
     Dosage: UNK
  14. SUCRALFATE [Concomitant]
     Active Substance: SUCRALFATE
     Dosage: UNK
  15. LYRICA [Concomitant]
     Active Substance: PREGABALIN
     Dosage: UNK
  16. ARANESP [Concomitant]
     Active Substance: DARBEPOETIN ALFA
     Dosage: UNK
  17. BETAHISTINE HYDROCHLORIDE [Concomitant]
     Active Substance: BETAHISTINE HYDROCHLORIDE
     Dosage: UNK

REACTIONS (3)
  - Product prescribing error [Unknown]
  - Hepatic encephalopathy [Recovered/Resolved]
  - Hypoglycaemia [Recovered/Resolved]
